FAERS Safety Report 23945834 (Version 1)
Quarter: 2024Q2

REPORT INFORMATION
  Report Type: Spontaneous
  Country: US (occurrence: None)
  Receive Date: 20240605
  Receipt Date: 20240605
  Transmission Date: 20240716
  Serious: No
  Sender: FDA-Public Use
  Company Number: None

PATIENT
  Age: 33 Year
  Sex: Female
  Weight: 69.4 kg

DRUGS (4)
  1. RINVOQ [Suspect]
     Active Substance: UPADACITINIB
     Indication: Rheumatoid arthritis
     Dosage: FREQUENCY : 3 TIMES A DAY;?
     Route: 048
     Dates: start: 202310
  2. RINVOQ [Suspect]
     Active Substance: UPADACITINIB
     Indication: Rheumatoid factor positive
  3. RINVOQ [Suspect]
     Active Substance: UPADACITINIB
     Indication: Polyarthritis
  4. RINVOQ [Suspect]
     Active Substance: UPADACITINIB
     Indication: Psoriasis

REACTIONS (2)
  - Lung disorder [None]
  - Disease complication [None]
